FAERS Safety Report 10899135 (Version 4)
Quarter: 2016Q1

REPORT INFORMATION
  Report Type: Spontaneous
  Country: KR (occurrence: KR)
  Receive Date: 20150309
  Receipt Date: 20160118
  Transmission Date: 20160525
  Serious: Yes (Hospitalization)
  Sender: FDA-Public Use
  Company Number: KR-BAYER-2015-030035

PATIENT
  Age: 67 Year
  Sex: Female

DRUGS (4)
  1. CLOPIDOGREL [Interacting]
     Active Substance: CLOPIDOGREL BISULFATE
     Indication: ANTIPLATELET THERAPY
     Dosage: DAILY DOSE 75 MG
  2. NIMODIPINE. [Interacting]
     Active Substance: NIMODIPINE
     Indication: CEREBROVASCULAR ACCIDENT PROPHYLAXIS
     Route: 042
  3. ACETYLSALICYLIC ACID({=100 MG) [Suspect]
     Active Substance: ASPIRIN
     Indication: ANTIPLATELET THERAPY
     Dosage: DAILY DOSE 75 MG
  4. HEPARIN [Interacting]
     Active Substance: HEPARIN SODIUM
     Indication: ANTICOAGULANT THERAPY
     Dosage: DAILY DOSE 25000 IU

REACTIONS (8)
  - Labelled drug-drug interaction medication error [None]
  - Cerebral infarction [None]
  - Paraplegia [None]
  - Hemiplegia [None]
  - Cerebral vasoconstriction [None]
  - Subarachnoid haemorrhage [None]
  - Spinal subarachnoid haemorrhage [None]
  - Off label use [None]
